FAERS Safety Report 7294369-0 (Version None)
Quarter: 2011Q1

REPORT INFORMATION
  Report Type: 
  Country: None (occurrence: None)
  Receive Date: 20110215
  Receipt Date: 20110204
  Transmission Date: 20110831
  Serious: Yes (Hospitalization)
  Sender: FDA-Public Use
  Company Number: AU-AMGEN-AUSSP2010011713

PATIENT
  Age: 42 Year
  Sex: Female

DRUGS (2)
  1. ENBREL [Suspect]
     Indication: PSORIATIC ARTHROPATHY
     Dosage: 50 MG, WEEKLY
     Route: 050
     Dates: start: 20080101, end: 20101001
  2. ENBREL [Suspect]
     Dosage: 50 MG, WEEKLY
     Route: 050
     Dates: start: 20080101, end: 20101001

REACTIONS (1)
  - ABORTION SPONTANEOUS [None]
